FAERS Safety Report 4877535-0 (Version None)
Quarter: 2006Q1

REPORT INFORMATION
  Report Type: 
  Country: None (occurrence: None)
  Receive Date: 20060109
  Receipt Date: 20051226
  Transmission Date: 20060701
  Serious: Yes (Death, Life-Threatening)
  Sender: FDA-Public Use
  Company Number: 2005JP002300

PATIENT
  Age: 78 Year
  Sex: Female
  Weight: 60 kg

DRUGS (4)
  1. PROGRAF [Suspect]
     Indication: DERMATOMYOSITIS
     Dosage: 3 MG, UID/QD, ORAL
     Route: 048
     Dates: start: 20051120, end: 20051124
  2. NEORAL [Suspect]
     Indication: DERMATOMYOSITIS
     Dosage: 100 MG, BID,
     Dates: start: 20051102, end: 20051120
  3. BAKTAR (SULFAMETHOXAZOLE, TRIMETHOPRIM) TABLET [Concomitant]
  4. PREDNISOLONE [Concomitant]

REACTIONS (5)
  - HAEMATOCRIT DECREASED [None]
  - HAEMOGLOBIN DECREASED [None]
  - RENAL FUNCTION TEST ABNORMAL [None]
  - RESPIRATORY FAILURE [None]
  - THROMBOTIC THROMBOCYTOPENIC PURPURA [None]
